FAERS Safety Report 5062264-3 (Version None)
Quarter: 2006Q3

REPORT INFORMATION
  Report Type: 
  Country: None (occurrence: None)
  Receive Date: 20060721
  Receipt Date: 20060710
  Transmission Date: 20061208
  Serious: Yes (Hospitalization)
  Sender: FDA-Public Use
  Company Number: 2006081869

PATIENT
  Age: 66 Year
  Sex: Female

DRUGS (6)
  1. SUTENT [Suspect]
     Indication: METASTATIC RENAL CELL CARCINOMA
     Dosage: SEE IMAGE, ORAL
     Route: 048
     Dates: start: 20060109, end: 20060315
  2. SUTENT [Suspect]
     Indication: METASTATIC RENAL CELL CARCINOMA
     Dosage: SEE IMAGE, ORAL
     Route: 048
     Dates: start: 20060403, end: 20060607
  3. SUTENT [Suspect]
     Indication: METASTATIC RENAL CELL CARCINOMA
     Dosage: SEE IMAGE, ORAL
     Route: 048
     Dates: start: 20060626, end: 20060629
  4. ADALAT [Concomitant]
  5. IMOVANE (ZOPICLONE) [Concomitant]
  6. RAMIPRIL [Concomitant]

REACTIONS (2)
  - HEPATITIS ACUTE [None]
  - PYREXIA [None]
